FAERS Safety Report 16747396 (Version 6)
Quarter: 2020Q2

REPORT INFORMATION
  Report Type: Report from Study
  Country: US (occurrence: US)
  Receive Date: 20190827
  Receipt Date: 20200529
  Transmission Date: 20200713
  Serious: Yes (Hospitalization, Disabling)
  Sender: FDA-Public Use
  Company Number: US-ACTELION-A-US2019-194575

PATIENT
  Age: 6 Year
  Sex: Male

DRUGS (35)
  1. BACLOFEN. [Concomitant]
     Active Substance: BACLOFEN
     Dosage: 1 ML, BID
     Dates: start: 20170224
  2. TRIAMCINOLONE [Concomitant]
     Active Substance: TRIAMCINOLONE
     Dosage: 1 APP PTUTV
     Route: 061
     Dates: start: 20170224
  3. VITAMIN D3 [Concomitant]
     Active Substance: CHOLECALCIFEROL
     Dosage: 5 ML, OD
     Dates: start: 20170224
  4. TRILEPTAL [Concomitant]
     Active Substance: OXCARBAZEPINE
     Dosage: 1.5 ML, BID
     Route: 048
     Dates: start: 20170224
  5. MIRALAX [Concomitant]
     Active Substance: POLYETHYLENE GLYCOL 3350
     Dosage: 1 CAPFUL , OD
     Dates: start: 20170224
  6. DOCUSATE [Concomitant]
     Active Substance: DOCUSATE
  7. KEPPRA [Concomitant]
     Active Substance: LEVETIRACETAM
     Dosage: 2.8 ML, BID
     Dates: start: 20170224
  8. VITAMIN B6 [Concomitant]
     Active Substance: PYRIDOXINE HYDROCHLORIDE
     Dosage: UNK, BID
     Dates: start: 20170224
  9. OXCARBAZEPINE. [Concomitant]
     Active Substance: OXCARBAZEPINE
  10. COLACE [Concomitant]
     Active Substance: DOCUSATE SODIUM
     Dosage: 10 MG/ML
  11. LACTOBACILLUS RHAMNOSUS [Concomitant]
     Active Substance: LACTOBACILLUS RHAMNOSUS
  12. ZAVESCA [Suspect]
     Active Substance: MIGLUSTAT
     Indication: FABRY^S DISEASE
     Dosage: 100 MG, TID
     Route: 048
     Dates: start: 20170302
  13. BACLOFEN. [Concomitant]
     Active Substance: BACLOFEN
     Dosage: 1 ML, TWICE A WEEK
  14. OMEPRAZOLE. [Concomitant]
     Active Substance: OMEPRAZOLE
  15. VITAMIN D [Concomitant]
     Active Substance: VITAMIN D NOS
  16. LACTULOSE. [Concomitant]
     Active Substance: LACTULOSE
     Dosage: 30 ML
  17. LORATADINE. [Concomitant]
     Active Substance: LORATADINE
     Dosage: 5 MG
  18. MANNITOL. [Concomitant]
     Active Substance: MANNITOL
     Dosage: 315 UNK, TID
     Dates: start: 20181030
  19. KEPPRA [Concomitant]
     Active Substance: LEVETIRACETAM
     Dosage: 2.8 ML TWICE A WEEK
     Dates: start: 20170224
  20. DIAZEPAM. [Concomitant]
     Active Substance: DIAZEPAM
  21. OXYCODONE [Concomitant]
     Active Substance: OXYCODONE
     Dosage: 5 MG/ 5 ML
  22. ALBUTEROL. [Concomitant]
     Active Substance: ALBUTEROL
  23. MAGNESIUM HYDROXIDE. [Concomitant]
     Active Substance: MAGNESIUM HYDROXIDE
  24. SIMETHICONE (DIMETHICONE) [Concomitant]
     Active Substance: DIMETHICONE
  25. CBD OIL [Concomitant]
     Active Substance: CANNABIDIOL\HERBALS
     Dosage: 0.25 MG, BID
     Dates: start: 20170224
  26. LEVALBUTEROL HCL [Concomitant]
     Active Substance: LEVALBUTEROL HYDROCHLORIDE
     Dosage: 0.63 MG/3 ML
  27. ZAVESCA [Suspect]
     Active Substance: MIGLUSTAT
     Indication: GM2 GANGLIOSIDOSIS
  28. CANNABIDIOL [Concomitant]
     Active Substance: CANNABIDIOL
     Dosage: 0.25 ML, BID
     Dates: start: 20170224
  29. VITAMIN C [Concomitant]
     Active Substance: ASCORBIC ACID
     Dosage: 500 MG
  30. CALCIUM [Concomitant]
     Active Substance: CALCIUM
     Dosage: 2.5 ML
  31. CULTURELLE [Concomitant]
     Active Substance: LACTOBACILLUS RHAMNOSUS
  32. PYRIDOXINE [Concomitant]
     Active Substance: PYRIDOXINE
  33. LUBIPROSTONE [Concomitant]
     Active Substance: LUBIPROSTONE
     Dosage: 8 MCG
  34. HYDROXYZINE [Concomitant]
     Active Substance: HYDROXYZINE HYDROCHLORIDE
  35. IBUPROFEN. [Concomitant]
     Active Substance: IBUPROFEN
     Dosage: 50 MG/1.25 ML

REACTIONS (10)
  - Pyrexia [Unknown]
  - Respiratory distress [Unknown]
  - Arthralgia [Unknown]
  - Constipation [Not Recovered/Not Resolved]
  - Upper respiratory tract infection [Unknown]
  - Oxygen saturation decreased [Unknown]
  - Pneumonia aspiration [Unknown]
  - Dyspnoea [Unknown]
  - Malaise [Unknown]
  - Skin laceration [Unknown]

NARRATIVE: CASE EVENT DATE: 2019
